FAERS Safety Report 25784850 (Version 1)
Quarter: 2025Q3

REPORT INFORMATION
  Report Type: Spontaneous
  Country: GB (occurrence: GB)
  Receive Date: 20250910
  Receipt Date: 20250910
  Transmission Date: 20251020
  Serious: Yes (Other)
  Sender: BOEHRINGER INGELHEIM
  Company Number: GB-MHRA-TPP34984122C8870494YC1757326681018

PATIENT
  Age: 54 Year
  Sex: Male
  Weight: 97 kg

DRUGS (12)
  1. EMPAGLIFLOZIN [Suspect]
     Active Substance: EMPAGLIFLOZIN
     Indication: Ill-defined disorder
     Dates: start: 20250520, end: 20250822
  2. DOXYCYCLINE [Concomitant]
     Active Substance: DOXYCYCLINE
     Indication: Ill-defined disorder
     Dates: start: 20250812, end: 20250819
  3. METRONIDAZOLE [Concomitant]
     Active Substance: METRONIDAZOLE
     Indication: Ill-defined disorder
     Dosage: FORM OF ADMIN:TPP YC - PLEASE RECLASSIFY
     Dates: start: 20250812, end: 20250819
  4. LANTUS [Concomitant]
     Active Substance: INSULIN GLARGINE
     Indication: Ill-defined disorder
  5. ASPIRIN [Concomitant]
     Active Substance: ASPIRIN
     Indication: Ill-defined disorder
     Dosage: FORM OF ADMIN:TPP YC - PLEASE RECLASSIFY
     Dates: start: 20250520
  6. BISOPROLOL [Concomitant]
     Active Substance: BISOPROLOL
     Indication: Ill-defined disorder
     Dosage: FORM OF ADMIN:TPP YC - PLEASE RECLASSIFY
     Dates: start: 20250520
  7. GLICLAZIDE [Concomitant]
     Active Substance: GLICLAZIDE
     Indication: Ill-defined disorder
     Dosage: TWO TO BE TAKEN?FORM OF ADMIN:TPP YC - PLEASE RECLASSIFY
     Dates: start: 20250520
  8. LANSOPRAZOLE [Concomitant]
     Active Substance: LANSOPRAZOLE
     Indication: Ill-defined disorder
     Dosage: FOR STOMACH?FORM OF ADMIN:TPP YC - PLEASE RECLASSIFY
     Dates: start: 20250520
  9. METFORMIN [Concomitant]
     Active Substance: METFORMIN HYDROCHLORIDE
     Indication: Ill-defined disorder
     Dosage: FORM OF ADMIN:TPP YC - PLEASE RECLASSIFY
     Dates: start: 20250520
  10. RAMIPRIL [Concomitant]
     Active Substance: RAMIPRIL
     Indication: Ill-defined disorder
     Dosage: FORM OF ADMIN:TPP YC - PLEASE RECLASSIFY
     Dates: start: 20250520
  11. RANOLAZINE [Concomitant]
     Active Substance: RANOLAZINE
     Indication: Ill-defined disorder
     Dosage: FORM OF ADMIN:TPP YC - PLEASE RECLASSIFY
     Dates: start: 20250520
  12. ROSUVASTATIN [Concomitant]
     Active Substance: ROSUVASTATIN
     Indication: Ill-defined disorder
     Dosage: (MORNING)?FORM OF ADMIN:TPP YC - PLEASE RECLASSIFY
     Dates: start: 20250520

REACTIONS (1)
  - Fournier^s gangrene [Unknown]

NARRATIVE: CASE EVENT DATE: 20250822
